FAERS Safety Report 22395702 (Version 1)
Quarter: 2023Q2

REPORT INFORMATION
  Report Type: Spontaneous
  Country: US (occurrence: US)
  Receive Date: 20230601
  Receipt Date: 20230601
  Transmission Date: 20230722
  Serious: No
  Sender: FDA-Public Use
  Company Number: US-APIL-2310730US

PATIENT
  Age: 49 Year
  Sex: Female

DRUGS (5)
  1. BOTOX COSMETIC [Suspect]
     Active Substance: ONABOTULINUMTOXINA
     Indication: Skin wrinkling
     Dosage: UNK UNK, SINGLE
     Route: 030
     Dates: start: 20230208, end: 20230208
  2. TRETINOIN [Concomitant]
     Active Substance: TRETINOIN
     Indication: Skin hyperpigmentation
     Dosage: 0.025 %, TOPICAL
  3. TRETINOIN [Concomitant]
     Active Substance: TRETINOIN
     Indication: Skin wrinkling
  4. HYDROQUINONE [Concomitant]
     Active Substance: HYDROQUINONE
     Indication: Skin hyperpigmentation
  5. HYDROQUINONE [Concomitant]
     Active Substance: HYDROQUINONE
     Indication: Skin wrinkling

REACTIONS (2)
  - Product preparation error [Unknown]
  - Drug ineffective [Unknown]

NARRATIVE: CASE EVENT DATE: 20230208
